FAERS Safety Report 9745231 (Version 5)
Quarter: 2014Q1

REPORT INFORMATION
  Report Type: Spontaneous
  Country: US (occurrence: US)
  Receive Date: 20131211
  Receipt Date: 20140217
  Transmission Date: 20141002
  Serious: No
  Sender: FDA-Public Use
  Company Number: US-PFIZER INC-2013349245

PATIENT
  Sex: Male
  Weight: 99.32 kg

DRUGS (8)
  1. SUTENT [Suspect]
     Indication: RENAL CANCER
     Dosage: 50 MG, CYCLIC (4 WEEKS ON AND 2 WEEKS OFF )
     Dates: start: 20131129, end: 20131129
  2. SUTENT [Suspect]
     Dosage: 50 MG, CYCLIC (4 WEEKS ON AND 2 WEEKS OFF )
     Dates: start: 20131203
  3. OXYCONTIN [Concomitant]
     Dosage: UNK
  4. DILAUDID [Concomitant]
     Dosage: UNK
  5. XANAX [Concomitant]
     Dosage: UNK
  6. AMBIEN [Concomitant]
     Dosage: UNK
  7. ZOFRAN [Concomitant]
     Dosage: UNK
  8. DULCOLAX [Concomitant]
     Indication: CONSTIPATION

REACTIONS (13)
  - Pyrexia [Unknown]
  - Fatigue [Unknown]
  - Musculoskeletal pain [Unknown]
  - Constipation [Unknown]
  - Nausea [Unknown]
  - Hair disorder [Unknown]
  - Dry mouth [Unknown]
  - Dry skin [Unknown]
  - Night sweats [Unknown]
  - Bone pain [Unknown]
  - Arthralgia [Unknown]
  - Pruritus [Unknown]
  - Dizziness [Unknown]
